FAERS Safety Report 23520949 (Version 2)
Quarter: 2025Q2

REPORT INFORMATION
  Report Type: Spontaneous
  Country: US (occurrence: US)
  Receive Date: 20240214
  Receipt Date: 20250424
  Transmission Date: 20250717
  Serious: Yes (Death, Hospitalization, Other)
  Sender: AUROBINDO
  Company Number: US-APOTEX-2014AP002251

PATIENT
  Age: 41 Year
  Sex: Male

DRUGS (6)
  1. AZITHROMYCIN [Suspect]
     Active Substance: AZITHROMYCIN
     Indication: Urethritis
     Route: 065
  2. TENOFOVIR DISOPROXIL FUMARATE [Suspect]
     Active Substance: TENOFOVIR DISOPROXIL FUMARATE
     Indication: HIV infection
     Route: 065
  3. CEFTRIAXONE [Suspect]
     Active Substance: CEFTRIAXONE
     Indication: Urethritis
     Route: 065
  4. DIDANOSINE [Suspect]
     Active Substance: DIDANOSINE
     Indication: HIV infection
     Route: 065
  5. ATAZANAVIR [Suspect]
     Active Substance: ATAZANAVIR
     Indication: HIV infection
     Route: 065
  6. RITONAVIR [Suspect]
     Active Substance: RITONAVIR
     Indication: HIV infection
     Route: 065

REACTIONS (10)
  - Renal failure [Fatal]
  - Vanishing bile duct syndrome [Fatal]
  - Pneumococcal sepsis [Fatal]
  - Intussusception [Unknown]
  - Hodgkin^s disease [Unknown]
  - Drug-induced liver injury [Unknown]
  - Pruritus [Unknown]
  - Pyrexia [Unknown]
  - Abdominal pain [Unknown]
  - Nausea [Unknown]
